FAERS Safety Report 9554648 (Version 1)
Quarter: 2013Q3

REPORT INFORMATION
  Report Type: Spontaneous
  Country: US (occurrence: US)
  Receive Date: 20130925
  Receipt Date: 20130925
  Transmission Date: 20140515
  Serious: Yes (Other)
  Sender: FDA-Public Use
  Company Number: US-PFIZER INC-2013275025

PATIENT
  Age: 72 Year
  Sex: Female
  Weight: 88.44 kg

DRUGS (5)
  1. LEVOXYL [Suspect]
     Indication: HYPOTHYROIDISM
     Dosage: UNK, 1X/DAY
     Route: 048
  2. LEVOXYL [Suspect]
     Dosage: 175 UG, 1X/DAY
     Route: 048
  3. LEVOXYL [Suspect]
     Dosage: 150 UG, 1X/DAY
     Route: 048
  4. LEVOXYL [Suspect]
     Dosage: 125 UG, 1X/DAY
     Route: 048
  5. LEVOXYL [Suspect]
     Dosage: UNK, 1X/DAY
     Route: 048

REACTIONS (1)
  - Neoplasm malignant [Unknown]
